FAERS Safety Report 5151884-3 (Version None)
Quarter: 2006Q4

REPORT INFORMATION
  Report Type: 
  Country: None (occurrence: None)
  Receive Date: 20061109
  Receipt Date: 20061025
  Transmission Date: 20070319
  Serious: Yes (Hospitalization)
  Sender: FDA-Public Use
  Company Number: 6026830

PATIENT
  Age: 71 Year
  Sex: Male

DRUGS (12)
  1. CARDENSIEL [Suspect]
     Indication: DRUG USE FOR UNKNOWN INDICATION
     Dosage: 3,75 MG ORAL; FOR 2 YEARS
     Route: 048
     Dates: end: 20060521
  2. FUROSEMIDE (40 MG, TABLET) (FUROSEMIDE SODIUM) [Suspect]
     Indication: DRUG USE FOR UNKNOWN INDICATION
     Dosage: 80 MG (40 MG, 2 IN 1 D) ORAL; FOR 2 YEARS
     Route: 048
  3. ENALAPRIL MALEATE [Suspect]
     Indication: DRUG USE FOR UNKNOWN INDICATION
     Dosage: 10 MG (10 MG, 1 IN 1 D) ORAL; FOR 2 YEARS
     Route: 048
  4. ZOLPIDEM TARTRATE [Suspect]
     Indication: DRUG USE FOR UNKNOWN INDICATION
     Dosage: 20 MG (10 MG, 2 IN 1 D) ORAL
     Route: 048
     Dates: end: 20060521
  5. DIALGIREX                      (PARACETAMOL, DEXTROPROPOXYPHENE HYDROC [Suspect]
     Indication: DRUG USE FOR UNKNOWN INDICATION
     Dosage: ORAL
     Route: 048
  6. ATARAX [Suspect]
     Indication: DRUG USE FOR UNKNOWN INDICATION
     Dosage: 10 MG (10 MG, 1 D) ORAL; FOR TWO YEARS
     Route: 048
     Dates: end: 20060521
  7. OMIX                       (TAMSULOSIN HYDROCHLORIDE) [Suspect]
     Indication: DRUG USE FOR UNKNOWN INDICATION
     Dosage: 0, 4 MG (0, 4 MG, 1 IN 1 D) ORAL
     Route: 048
     Dates: end: 20060521
  8. ALPRAZOLAM [Concomitant]
  9. PREVISCAN                          (PENTOXIFYLLINE) [Concomitant]
  10. LIPANTHYL                    (FENOFIBRATE) [Concomitant]
  11. LOPERAMIDE [Concomitant]
  12. CETORNAN                   (ORNITHINE OXOGLURATE) [Concomitant]

REACTIONS (5)
  - DEHYDRATION [None]
  - FALL [None]
  - HYPOTENSION [None]
  - MUSCULAR WEAKNESS [None]
  - RENAL FAILURE [None]
